FAERS Safety Report 23692659 (Version 2)
Quarter: 2024Q2

REPORT INFORMATION
  Report Type: Spontaneous
  Country: BE (occurrence: BE)
  Receive Date: 20240401
  Receipt Date: 20240403
  Transmission Date: 20240716
  Serious: Yes (Other)
  Sender: FDA-Public Use
  Company Number: BE-PFIZER INC-PV202400041267

PATIENT
  Sex: Female
  Weight: 44 kg

DRUGS (1)
  1. SOLU-MEDROL [Suspect]
     Active Substance: METHYLPREDNISOLONE SODIUM SUCCINATE
     Indication: Allergy prophylaxis
     Dosage: UNK
     Route: 042
     Dates: start: 20240327, end: 20240327

REACTIONS (3)
  - Hypersensitivity [Unknown]
  - Obstructive airways disorder [Unknown]
  - Erythema [Unknown]

NARRATIVE: CASE EVENT DATE: 20240327
